FAERS Safety Report 16971339 (Version 1)
Quarter: 2019Q4

REPORT INFORMATION
  Report Type: Spontaneous
  Country: US (occurrence: US)
  Receive Date: 20191028
  Receipt Date: 20191028
  Transmission Date: 20200122
  Serious: No
  Sender: FDA-Public Use
  Company Number: None

PATIENT
  Age: 42 Year
  Sex: Male
  Weight: 102.6 kg

DRUGS (1)
  1. HYDROCHLOROTHIAZIDE TAB 25MG, 25 MG UNICHEM [Suspect]
     Active Substance: HYDROCHLOROTHIAZIDE
     Indication: HYPERTENSION
     Dosage: ?          QUANTITY:1 TABLET(S);?
     Route: 048
     Dates: start: 20191011, end: 20191028

REACTIONS (5)
  - Tachycardia [None]
  - Dry skin [None]
  - Nausea [None]
  - Blood glucose increased [None]
  - Dizziness [None]

NARRATIVE: CASE EVENT DATE: 20191028
